FAERS Safety Report 20411518 (Version 1)
Quarter: 2022Q1

REPORT INFORMATION
  Report Type: Spontaneous
  Country: US (occurrence: US)
  Receive Date: 20220201
  Receipt Date: 20220201
  Transmission Date: 20220423
  Serious: Yes (Hospitalization, Other)
  Sender: FDA-Public Use
  Company Number: US-TEVA-2022-US-2004660

PATIENT
  Sex: Female

DRUGS (1)
  1. COPAXONE [Suspect]
     Active Substance: GLATIRAMER ACETATE
     Dosage: FORM STRENGTH-UNKNOWN
     Route: 065

REACTIONS (9)
  - Hospitalisation [Unknown]
  - Secondary progressive multiple sclerosis [Unknown]
  - Illness [Unknown]
  - Gait inability [Unknown]
  - Loss of personal independence in daily activities [Unknown]
  - Sitting disability [Unknown]
  - Limb mass [Unknown]
  - Flight of ideas [Unknown]
  - Drug ineffective [Unknown]
